FAERS Safety Report 9442115 (Version 1)
Quarter: 2013Q3

REPORT INFORMATION
  Report Type: Spontaneous
  Country: US (occurrence: None)
  Receive Date: 20130805
  Receipt Date: 20130805
  Transmission Date: 20140515
  Serious: Yes (Other)
  Sender: FDA-Public Use
  Company Number: None

PATIENT
  Age: 59 None
  Sex: Female

DRUGS (7)
  1. GAMUNEX-C [Suspect]
     Indication: HYPOGAMMAGLOBULINAEMIA
     Dosage: I IVIG INFUSION BAG WAS TO BE MONTHLY THIS WAS INTIAL TREATMENT. IV INFUSION, LEFT ARM
     Route: 042
     Dates: start: 20130712, end: 20130712
  2. TYLENOL [Concomitant]
  3. PEPCID PPI [Concomitant]
  4. CORTICOSTEROID [Concomitant]
  5. FISH OIL [Concomitant]
  6. B12 [Concomitant]
  7. MULTI-B [Concomitant]

REACTIONS (30)
  - Infusion related reaction [None]
  - Headache [None]
  - Hypoaesthesia [None]
  - Chest discomfort [None]
  - Chills [None]
  - Muscle spasms [None]
  - Muscle twitching [None]
  - Pain in extremity [None]
  - Muscle atrophy [None]
  - Asthenia [None]
  - Balance disorder [None]
  - Nausea [None]
  - Vision blurred [None]
  - Migraine [None]
  - Photosensitivity reaction [None]
  - Parosmia [None]
  - Hyperacusis [None]
  - Bronchial hyperreactivity [None]
  - Asthma [None]
  - Fatigue [None]
  - Neck pain [None]
  - Dyskinesia [None]
  - Dry skin [None]
  - Diarrhoea [None]
  - Steatorrhoea [None]
  - Insomnia [None]
  - Palpitations [None]
  - Tachycardia [None]
  - Body temperature fluctuation [None]
  - Arthritis [None]
